FAERS Safety Report 10235650 (Version 1)
Quarter: 2014Q1

REPORT INFORMATION
  Report Type: Spontaneous
  Country: US (occurrence: None)
  Receive Date: 20140306
  Receipt Date: 20140306
  Transmission Date: 20141002
  Serious: Yes (Other)
  Sender: FDA-Public Use
  Company Number: 163-21880-13023084

PATIENT
  Age: 66 Year
  Sex: Female
  Weight: 61.2 kg

DRUGS (14)
  1. REVLIMID [Suspect]
     Indication: PLASMA CELL MYELOMA
     Dosage: TEMPORARILY INTERRUPTED
     Route: 048
     Dates: start: 20101029
  2. DEXAMETHASONE (DEXAMETHASONE) [Concomitant]
  3. ZOMETA (ZOLEDRONIC ACID) [Concomitant]
  4. ACYCLOVIR (ACICLOVIR) [Concomitant]
  5. PANTOPRAZOLE SODIUM (PANTOPRAZOLE SODIUM) [Concomitant]
  6. CALCITRIOL (CALCITRIOL) [Concomitant]
  7. LYRICA (PREGABALIN) [Concomitant]
  8. KLOR-CON (POTASSIUM CHLORIDE) [Concomitant]
  9. LEXAPRO (ESCITALOPRAM OXALATE) [Concomitant]
  10. OXYCONTIN (OXYCODONE HYDROCHLORIDE) [Concomitant]
  11. RANITIDINE (RANITIDINE) [Concomitant]
  12. ATROPINE (ATROPINE) [Concomitant]
  13. LEVOTHYROXINE (LEVOTHYROXINE) [Concomitant]
  14. PREDNISOLONE (PREDNISOLONE) [Concomitant]

REACTIONS (4)
  - Laboratory test abnormal [None]
  - White blood cell count decreased [None]
  - Muscle spasms [None]
  - Immune system disorder [None]
